FAERS Safety Report 10208627 (Version 2)
Quarter: 2014Q2

REPORT INFORMATION
  Report Type: Spontaneous
  Country: US (occurrence: US)
  Receive Date: 20140530
  Receipt Date: 20140530
  Transmission Date: 20141212
  Serious: No
  Sender: FDA-Public Use
  Company Number: US-PURDUE-USA-2013-0105037

PATIENT
  Age: 54 Year
  Sex: Male
  Weight: 92.97 kg

DRUGS (2)
  1. MORPHINE SULFATE EXTENDED-RELEASE TABLETS (RHODES 74-769, 74-862) [Suspect]
     Indication: PAIN
     Dosage: 120 MG, Q12H
     Route: 048
     Dates: start: 2009
  2. NORCO [Concomitant]
     Indication: PRODUCT USED FOR UNKNOWN INDICATION
     Dosage: 10/325 MG, UNK
     Route: 048

REACTIONS (2)
  - Abdominal distension [Recovered/Resolved]
  - Constipation [Recovered/Resolved]
